FAERS Safety Report 16812695 (Version 3)
Quarter: 2019Q3

REPORT INFORMATION
  Report Type: Report from Study
  Country: US (occurrence: US)
  Receive Date: 20190916
  Receipt Date: 20190927
  Transmission Date: 20191005
  Serious: Yes (Death, Hospitalization, Other)
  Sender: FDA-Public Use
  Company Number: PHEH2019US037813

PATIENT
  Age: 70 Year
  Sex: Female

DRUGS (6)
  1. LISINOPRIL. [Concomitant]
     Active Substance: LISINOPRIL
     Indication: PRODUCT USED FOR UNKNOWN INDICATION
     Dosage: 10 MG, UNK
     Route: 065
  2. VERAPAMIL [Concomitant]
     Active Substance: VERAPAMIL HYDROCHLORIDE
     Indication: PRODUCT USED FOR UNKNOWN INDICATION
     Dosage: 180 MG, UNK
     Route: 065
  3. MAYZENT [Suspect]
     Active Substance: SIPONIMOD
     Dosage: 1 MG, UNK
     Route: 065
  4. MAYZENT [Suspect]
     Active Substance: SIPONIMOD
     Indication: MULTIPLE SCLEROSIS
     Dosage: 2 MG, QD
     Route: 048
     Dates: start: 201908
  5. ZOLOFT [Concomitant]
     Active Substance: SERTRALINE HYDROCHLORIDE
     Indication: PRODUCT USED FOR UNKNOWN INDICATION
     Dosage: UNK
     Route: 065
     Dates: start: 201906
  6. AMPYRA [Concomitant]
     Active Substance: DALFAMPRIDINE
     Indication: PRODUCT USED FOR UNKNOWN INDICATION
     Route: 065

REACTIONS (16)
  - Shock [Unknown]
  - Cardio-respiratory arrest [Unknown]
  - Lactic acidosis [Unknown]
  - Urinary tract infection [Unknown]
  - Respiratory disorder [Unknown]
  - Dyspnoea [Unknown]
  - Respiratory failure [Unknown]
  - Dizziness [Unknown]
  - Chest pain [Unknown]
  - Hypotension [Unknown]
  - Nausea [Unknown]
  - Multiple sclerosis [Fatal]
  - Asthenia [Fatal]
  - Bradycardia [Unknown]
  - Hypertension [Unknown]
  - Hypothermia [Unknown]

NARRATIVE: CASE EVENT DATE: 20190829
